FAERS Safety Report 10070663 (Version 1)
Quarter: 2014Q2

REPORT INFORMATION
  Report Type: Spontaneous
  Country: GR (occurrence: GR)
  Receive Date: 20140410
  Receipt Date: 20140410
  Transmission Date: 20141212
  Serious: Yes (Other)
  Sender: FDA-Public Use
  Company Number: GR-BAXTER-2014BAX016887

PATIENT
  Age: 65 Year
  Sex: Male

DRUGS (4)
  1. PLASMAVOLUME REDIBAG SOLUTION FOR INFUSION [Suspect]
     Indication: FLUID REPLACEMENT
     Route: 065
  2. XYLOCAINE [Suspect]
     Indication: SPINAL ANAESTHESIA
     Route: 065
  3. CHIROCAINE [Suspect]
     Indication: SPINAL ANAESTHESIA
     Route: 065
  4. FENTANYL [Suspect]
     Indication: SPINAL ANAESTHESIA
     Dosage: 10Y
     Route: 065

REACTIONS (1)
  - Pulmonary embolism [Recovering/Resolving]
